FAERS Safety Report 7641922-8 (Version None)
Quarter: 2011Q3

REPORT INFORMATION
  Report Type: 
  Country: None (occurrence: None)
  Receive Date: 20110728
  Receipt Date: 20110720
  Transmission Date: 20111222
  Serious: Yes (Hospitalization)
  Sender: FDA-Public Use
  Company Number: US-ROCHE-791413

PATIENT
  Age: 40 Year
  Sex: Male

DRUGS (1)
  1. DACLIZUMAB [Suspect]
     Indication: MULTIPLE SCLEROSIS
     Dosage: FORM: INFUSION
     Route: 042

REACTIONS (3)
  - LYMPHADENOPATHY [None]
  - DERMATITIS [None]
  - PYREXIA [None]
